FAERS Safety Report 4553889-X (Version None)
Quarter: 2005Q1

REPORT INFORMATION
  Report Type: 
  Country: None (occurrence: None)
  Receive Date: 20050118
  Receipt Date: 20050107
  Transmission Date: 20050727
  Serious: Yes (Disabling)
  Sender: FDA-Public Use
  Company Number: US-MERCK-0501USA00827

PATIENT
  Age: 72 Year
  Sex: Female

DRUGS (5)
  1. VIOXX [Suspect]
     Indication: ARTHRALGIA
     Route: 048
     Dates: end: 20040930
  2. ZETIA [Concomitant]
     Route: 065
  3. ZOCOR [Concomitant]
     Route: 065
  4. NORVASC [Concomitant]
     Route: 065
  5. TOPROL-XL [Concomitant]
     Route: 065

REACTIONS (2)
  - HEART RATE IRREGULAR [None]
  - INSOMNIA [None]
